FAERS Safety Report 10120836 (Version 3)
Quarter: 2014Q3

REPORT INFORMATION
  Report Type: Spontaneous
  Country: JP (occurrence: JP)
  Receive Date: 20140425
  Receipt Date: 20140808
  Transmission Date: 20150326
  Serious: Yes (Death)
  Sender: FDA-Public Use
  Company Number: JP-BRISTOL-MYERS SQUIBB COMPANY-20666921

PATIENT
  Age: 69 Year
  Sex: Male
  Weight: 61.6 kg

DRUGS (6)
  1. ERBITUX [Suspect]
     Active Substance: CETUXIMAB
     Indication: SQUAMOUS CELL CARCINOMA OF HEAD AND NECK
     Dosage: 670MG: 26MAR14-26MAR14.?420MG: 01APR14-01APR14.?418MG: 08APR14-08APR14
     Route: 042
     Dates: start: 20140326, end: 20140408
  2. HYPEN [Suspect]
     Active Substance: ETODOLAC
  3. MINOMYCIN [Concomitant]
     Active Substance: MINOCYCLINE HYDROCHLORIDE
  4. GASMOTIN [Concomitant]
     Active Substance: MOSAPRIDE CITRATE
     Route: 048
  5. CALONAL [Concomitant]
     Active Substance: ACETAMINOPHEN
  6. TAKEPRON [Concomitant]
     Active Substance: LANSOPRAZOLE

REACTIONS (1)
  - Haematemesis [Fatal]
